FAERS Safety Report 5784687-7 (Version None)
Quarter: 2008Q2

REPORT INFORMATION
  Report Type: 
  Country: None (occurrence: None)
  Receive Date: 20080605
  Receipt Date: 20080411
  Transmission Date: 20081010
  Serious: No
  Sender: FDA-Public Use
  Company Number: A0722272A

PATIENT
  Age: 53 Year

DRUGS (2)
  1. ALLI [Suspect]
  2. SYNTHROID [Concomitant]

REACTIONS (4)
  - CONSTIPATION [None]
  - GASTROINTESTINAL DISORDER [None]
  - WEIGHT FLUCTUATION [None]
  - WEIGHT INCREASED [None]
